FAERS Safety Report 17902111 (Version 2)
Quarter: 2020Q3

REPORT INFORMATION
  Report Type: Spontaneous
  Country: US (occurrence: US)
  Receive Date: 20200616
  Receipt Date: 20200702
  Transmission Date: 20201103
  Serious: No
  Sender: FDA-Public Use
  Company Number: US-JNJFOC-20200608407

PATIENT
  Age: 64 Year
  Sex: Female
  Weight: 52.66 kg

DRUGS (6)
  1. STELARA [Suspect]
     Active Substance: USTEKINUMAB
     Indication: CROHN^S DISEASE
     Route: 042
     Dates: start: 202001
  2. DEXILANT [Concomitant]
     Active Substance: DEXLANSOPRAZOLE
     Route: 065
  3. CALCIUM                            /00060701/ [Concomitant]
     Active Substance: CALCIUM
     Route: 065
  4. STELARA [Suspect]
     Active Substance: USTEKINUMAB
  5. PREDNISONE. [Concomitant]
     Active Substance: PREDNISONE
     Dosage: LOW DOSE PREDNISONE
     Route: 065
  6. STELARA [Suspect]
     Active Substance: USTEKINUMAB
     Indication: CROHN^S DISEASE
     Route: 058

REACTIONS (15)
  - Heart rate increased [Unknown]
  - Feeling hot [Unknown]
  - Drug level increased [Unknown]
  - Increased tendency to bruise [Unknown]
  - Dizziness [Recovered/Resolved]
  - Back pain [Unknown]
  - Infusion related reaction [Recovered/Resolved]
  - Pruritus [Recovered/Resolved]
  - Burning sensation [Recovered/Resolved]
  - Cutaneous vasculitis [Unknown]
  - Flushing [Unknown]
  - Gastric disorder [Unknown]
  - Respiratory rate increased [Unknown]
  - Alopecia [Unknown]
  - Blood pressure increased [Recovered/Resolved]

NARRATIVE: CASE EVENT DATE: 202001
